FAERS Safety Report 6218236-6 (Version None)
Quarter: 2009Q2

REPORT INFORMATION
  Report Type: 
  Country: None (occurrence: None)
  Receive Date: 20090608
  Receipt Date: 20090527
  Transmission Date: 20091009
  Serious: Yes (Life-Threatening, Hospitalization)
  Sender: FDA-Public Use
  Company Number: JP-PFIZER INC-2009215772

PATIENT
  Age: 67 Year

DRUGS (10)
  1. FARMORUBICIN [Suspect]
     Indication: BREAST CANCER
     Dosage: UNK
     Route: 042
     Dates: start: 20080722, end: 20090421
  2. FLUOROURACIL [Suspect]
     Indication: BREAST CANCER
     Dosage: UNK
     Route: 042
     Dates: start: 20080722, end: 20090421
  3. CYCLOPHOSPHAMIDE [Suspect]
     Indication: BREAST CANCER
     Dosage: UNK MG, UNK
     Route: 042
     Dates: start: 20080722, end: 20090421
  4. URSO 250 [Concomitant]
     Dosage: UNK
     Route: 048
     Dates: end: 20090421
  5. LANDEL [Concomitant]
     Dosage: UNK
     Route: 048
     Dates: end: 20090421
  6. SIMVASTATIN [Concomitant]
     Dosage: UNK
     Route: 048
     Dates: start: 20070320, end: 20090421
  7. OXYCONTIN [Concomitant]
     Dosage: UNK
     Route: 048
     Dates: start: 20080519, end: 20090421
  8. FAMOTIDINE [Concomitant]
     Dosage: UNK
     Route: 048
     Dates: start: 20080519, end: 20090421
  9. VESICARE [Concomitant]
     Dosage: UNK
     Route: 048
     Dates: start: 20090128, end: 20090421
  10. NEUROVITAN [Concomitant]
     Dosage: UNK
     Route: 048
     Dates: start: 20090421, end: 20090421

REACTIONS (3)
  - INTERSTITIAL LUNG DISEASE [None]
  - NEUTROPENIA [None]
  - PULMONARY OEDEMA [None]
